FAERS Safety Report 7449839-9 (Version None)
Quarter: 2011Q2

REPORT INFORMATION
  Report Type: 
  Country: None (occurrence: None)
  Receive Date: 20110428
  Receipt Date: 20110428
  Transmission Date: 20111010
  Serious: Yes (Other)
  Sender: FDA-Public Use
  Company Number: None

PATIENT
  Age: 61 Year
  Sex: Female
  Weight: 56.6996 kg

DRUGS (1)
  1. SUPREP BOWEL PREP KIT [Suspect]
     Indication: COLONOSCOPY
     Dosage: 2 6OZ BOTTLES OF PREP 1 @ NIGHT 1@ MORN
     Dates: start: 20110425, end: 20110426

REACTIONS (6)
  - DRUG HYPERSENSITIVITY [None]
  - INSOMNIA [None]
  - OESOPHAGEAL PAIN [None]
  - DYSPHONIA [None]
  - PRODUCTIVE COUGH [None]
  - OROPHARYNGEAL PAIN [None]
